FAERS Safety Report 5205709-8 (Version None)
Quarter: 2007Q1

REPORT INFORMATION
  Report Type: 
  Country: None (occurrence: None)
  Receive Date: 20070111
  Receipt Date: 20070109
  Transmission Date: 20070707
  Serious: Yes (Life-Threatening, Hospitalization)
  Sender: FDA-Public Use
  Company Number: GB-NOVOPROD-259855

PATIENT
  Age: 59 Year
  Sex: Male
  Weight: 68 kg

DRUGS (5)
  1. ACTRAPID [Suspect]
     Indication: DRUG USE FOR UNKNOWN INDICATION
     Dates: start: 20060727, end: 20060727
  2. ASPIRIN [Concomitant]
     Dosage: 75 MG, QD
     Route: 048
     Dates: end: 20060425
  3. LIPITOR [Concomitant]
     Dosage: 40 MG, QD
     Dates: end: 20060727
  4. BECLOMETHASONE DIPROPIONATE [Concomitant]
     Dates: end: 20060727
  5. DILTIAZEM HCL [Concomitant]
     Dosage: 180 MG, QD
     Dates: end: 20060727

REACTIONS (3)
  - BRONCHOSPASM [None]
  - CIRCULATORY COLLAPSE [None]
  - RENAL FAILURE [None]
